FAERS Safety Report 25568162 (Version 1)
Quarter: 2025Q3

REPORT INFORMATION
  Report Type: Spontaneous
  Country: US (occurrence: US)
  Receive Date: 20250716
  Receipt Date: 20250716
  Transmission Date: 20251021
  Serious: No
  Sender: NOVARTIS
  Company Number: US-002147023-NVSC2025US113150

PATIENT
  Sex: Female

DRUGS (2)
  1. COSENTYX [Suspect]
     Active Substance: SECUKINUMAB
     Indication: Product used for unknown indication
     Route: 065
  2. DORYX [Suspect]
     Active Substance: DOXYCYCLINE HYCLATE
     Indication: Infection
     Dosage: 50 MG, QD
     Route: 065

REACTIONS (1)
  - Drug ineffective [Unknown]
